FAERS Safety Report 8616587 (Version 3)
Quarter: 2014Q1

REPORT INFORMATION
  Report Type: Spontaneous
  Country: US (occurrence: US)
  Receive Date: 20120615
  Receipt Date: 20140108
  Transmission Date: 20141002
  Serious: Yes (Hospitalization, Disabling, Other)
  Sender: FDA-Public Use
  Company Number: US-ASTRAZENECA-2012SE35768

PATIENT
  Age: 58 Year
  Sex: Female
  Weight: 65.8 kg

DRUGS (7)
  1. NEXIUM [Suspect]
     Indication: GASTROOESOPHAGEAL REFLUX DISEASE
     Route: 048
     Dates: start: 2000
  2. DICYCLOMINE [Concomitant]
     Indication: IRRITABLE BOWEL SYNDROME
  3. LISINOP/HCTZ [Concomitant]
     Indication: HYPERTENSION
     Dosage: 20 TO 25 TABLET
  4. AMLODIPINE BESYLATE [Concomitant]
     Route: 048
     Dates: start: 20100420
  5. HYDROCODONE-ACETAMINOPHEN [Concomitant]
     Dosage: 7.5/500 MG, AS NEEDED
     Route: 048
     Dates: start: 20100420
  6. PROMETHAZINE HCL [Concomitant]
     Dosage: 25 MG, 1 EVERY FOUR HOURS, AS NEEDED
     Route: 048
     Dates: start: 20100420
  7. ULTRAM [Concomitant]
     Dosage: 50 MG, 1 EVERY EIGHT HOURS, AS NEEDED
     Route: 048
     Dates: start: 20100420

REACTIONS (9)
  - Ankle fracture [Unknown]
  - Haemorrhage [Unknown]
  - Throat irritation [Unknown]
  - Fibula fracture [Unknown]
  - Pharyngeal disorder [Unknown]
  - Joint dislocation [Unknown]
  - Osteoporosis [Unknown]
  - Multiple fractures [Unknown]
  - Arthritis [Unknown]
